FAERS Safety Report 11024482 (Version 3)
Quarter: 2015Q2

REPORT INFORMATION
  Report Type: Spontaneous
  Country: US (occurrence: US)
  Receive Date: 20150414
  Receipt Date: 20150609
  Transmission Date: 20150821
  Serious: Yes (Life-Threatening, Hospitalization, Other)
  Sender: FDA-Public Use
  Company Number: US-ABBVIE-15K-163-1374033-00

PATIENT
  Age: 39 Year
  Sex: Male
  Weight: 78.09 kg

DRUGS (2)
  1. HUMIRA [Suspect]
     Active Substance: ADALIMUMAB
     Indication: PSORIATIC ARTHROPATHY
     Route: 058
     Dates: end: 20150215
  2. HUMIRA [Suspect]
     Active Substance: ADALIMUMAB
     Indication: PSORIASIS
     Route: 058
     Dates: start: 201309

REACTIONS (11)
  - Memory impairment [Not Recovered/Not Resolved]
  - Haematocrit decreased [Unknown]
  - Herpes virus infection [Unknown]
  - Aphasia [Unknown]
  - Diastolic dysfunction [Unknown]
  - Blood bilirubin increased [Unknown]
  - Left ventricular hypertrophy [Unknown]
  - Blood potassium decreased [Unknown]
  - Vasculitis cerebral [Recovered/Resolved with Sequelae]
  - Haemoglobin decreased [Unknown]
  - Hyperdynamic left ventricle [Unknown]

NARRATIVE: CASE EVENT DATE: 2015
